FAERS Safety Report 4649827-1 (Version None)
Quarter: 2005Q2

REPORT INFORMATION
  Report Type: 
  Country: None (occurrence: None)
  Receive Date: 20050427
  Receipt Date: 20050420
  Transmission Date: 20051028
  Serious: Yes (Other)
  Sender: FDA-Public Use
  Company Number: USA-2005-0019890

PATIENT
  Age: 64 Year
  Sex: 0

DRUGS (3)
  1. CEFDITOREN PIVOXIL            (CEFDITOREN PIVOXIL) [Suspect]
     Indication: INFECTION PROPHYLAXIS
     Dosage: 100 MG, DAILY
     Dates: start: 20050415, end: 20050415
  2. CEFDITOREN PIVOXIL            (CEFDITOREN PIVOXIL) [Suspect]
     Indication: TOOTH EXTRACTION
     Dosage: 100 MG, DAILY
     Dates: start: 20050415, end: 20050415
  3. ENTERONON       (LACTOBACILLUS ACIDOPHILUS) [Concomitant]

REACTIONS (3)
  - ERYTHEMA [None]
  - PRURITUS [None]
  - SWELLING FACE [None]
